FAERS Safety Report 10078373 (Version 1)
Quarter: 2014Q1

REPORT INFORMATION
  Report Type: Spontaneous
  Country: US (occurrence: None)
  Receive Date: 20140328
  Receipt Date: 20140328
  Transmission Date: 20141002
  Serious: Yes (Death)
  Sender: FDA-Public Use
  Company Number: 2014-US-003170

PATIENT
  Age: 73 Year
  Sex: Male

DRUGS (12)
  1. CLOZAPINE [Suspect]
     Indication: PSYCHOTIC DISORDER
     Route: 048
     Dates: start: 20140218, end: 20140223
  2. ATROPINE SULFATE (ATROPINE SULFATE) [Concomitant]
  3. COAL TAR (COAL TAR) [Concomitant]
  4. MILK OF MAGNESIA (MAGNESIUM HYDROXIDE) [Concomitant]
  5. POLYETHYLENE GLYCOL (MARCROGOL) POWDER [Concomitant]
  6. SIMETHICONE (SIMETICONE) [Concomitant]
  7. TAMSULOSIN HCL (TAMSULOSIN HYDROCHLORIDE) [Concomitant]
  8. TRIAMCINOLONE ACETONIDE (TRIAMCINOLONE ACETONIDE) [Concomitant]
  9. DOVONEX (CALCIPOTRIOL) [Concomitant]
  10. ACETAMINOPHEN (PARACETAMOL) TABLET [Concomitant]
  11. MYLANTA (ALUMINIUM HYDROXIDE, MAGNESIUM HYDROXIDE) [Concomitant]
  12. PAROXETINE HCL (PAROXETINE HYDROCHLORIDE) [Concomitant]

REACTIONS (2)
  - Cerebrovascular accident [None]
  - Dementia [None]
